FAERS Safety Report 9009933 (Version 1)
Quarter: 2013Q1

REPORT INFORMATION
  Report Type: Spontaneous
  Country: JP (occurrence: JP)
  Receive Date: 20130110
  Receipt Date: 20130110
  Transmission Date: 20140127
  Serious: Yes (Other)
  Sender: FDA-Public Use
  Company Number: JP-MERCK-1212JPN000389

PATIENT
  Age: 69 Year
  Sex: Female

DRUGS (6)
  1. RIBAVIRIN [Suspect]
     Indication: CHRONIC HEPATITIS C
     Dosage: 600 MG, QD
     Route: 048
     Dates: start: 2004
  2. RIBAVIRIN [Suspect]
     Dosage: 400 MG, UNK
     Route: 048
     Dates: start: 201204, end: 2012
  3. PEGINTERFERON ALFA-2B [Suspect]
     Indication: CHRONIC HEPATITIS C
     Dosage: 80 MICROGRAM, QW
     Route: 058
     Dates: start: 2004
  4. PEGINTERFERON ALFA-2B [Suspect]
     Dosage: UNK
     Route: 058
     Dates: start: 201204, end: 2012
  5. PEGINTERFERON ALFA-2A [Suspect]
     Indication: CHRONIC HEPATITIS C
     Dosage: 90 MICROGRAM, UNK
     Dates: start: 2004
  6. TELAPREVIR [Suspect]
     Indication: CHRONIC HEPATITIS C
     Dosage: 15 MG, UNK
     Dates: start: 201204, end: 2012

REACTIONS (5)
  - Renal impairment [Recovering/Resolving]
  - Fatigue [Unknown]
  - Headache [Unknown]
  - Flatulence [Unknown]
  - Pyrexia [Unknown]
